FAERS Safety Report 12089587 (Version 1)
Quarter: 2016Q1

REPORT INFORMATION
  Report Type: Spontaneous
  Country: US (occurrence: US)
  Receive Date: 20160218
  Receipt Date: 20160218
  Transmission Date: 20160526
  Serious: No
  Sender: FDA-Public Use
  Company Number: US-PFIZER INC-2016097221

PATIENT
  Age: 21 Month
  Sex: Male

DRUGS (1)
  1. INFANTS ADVIL CONCENTRATED DROPS [Suspect]
     Active Substance: IBUPROFEN
     Indication: PYREXIA

REACTIONS (5)
  - Eye swelling [Unknown]
  - Rhinorrhoea [Unknown]
  - Erythema [Unknown]
  - Cough [Unknown]
  - Rash [Unknown]
